FAERS Safety Report 8890163 (Version 1)
Quarter: 2012Q4

REPORT INFORMATION
  Report Type: 
  Country: GB (occurrence: GB)
  Receive Date: 20121107
  Receipt Date: 20121107
  Transmission Date: 20130627
  Serious: Yes (Death, Other)
  Sender: FDA-Public Use
  Company Number: PHHY2012GB101328

PATIENT
  Age: 49 Year
  Sex: Male

DRUGS (1)
  1. CICLOSPORIN [Suspect]
     Indication: HISTIOCYTOSIS HAEMATOPHAGIC

REACTIONS (5)
  - Histiocytosis haematophagic [Fatal]
  - Renal impairment [Fatal]
  - Serum ferritin increased [Fatal]
  - Hepatic function abnormal [Fatal]
  - Drug ineffective [Unknown]
